FAERS Safety Report 11243837 (Version 1)
Quarter: 2015Q3

REPORT INFORMATION
  Report Type: Spontaneous
  Country: PT (occurrence: PT)
  Receive Date: 20150707
  Receipt Date: 20150707
  Transmission Date: 20151125
  Serious: Yes (Hospitalization)
  Sender: FDA-Public Use
  Company Number: PHHY2015PT080856

PATIENT
  Age: 65 Year
  Sex: Female

DRUGS (1)
  1. VALPROATE SODIUM. [Suspect]
     Active Substance: VALPROATE SODIUM
     Indication: PROPHYLAXIS
     Route: 065

REACTIONS (7)
  - Pneumonia [Unknown]
  - Staphylococcal sepsis [Unknown]
  - Toxic epidermal necrolysis [Recovered/Resolved]
  - Pruritus [Recovered/Resolved]
  - Pseudomembranous colitis [Unknown]
  - Erythema [Recovered/Resolved]
  - Dysphagia [Unknown]
